FAERS Safety Report 15719518 (Version 2)
Quarter: 2019Q1

REPORT INFORMATION
  Report Type: Spontaneous
  Country: US (occurrence: US)
  Receive Date: 20181213
  Receipt Date: 20190225
  Transmission Date: 20190417
  Serious: Yes (Other)
  Sender: FDA-Public Use
  Company Number: US-SA-2018SA336446

PATIENT
  Age: 50 Year
  Sex: Female
  Weight: 104 kg

DRUGS (21)
  1. NEOSAR [Concomitant]
     Active Substance: CYCLOPHOSPHAMIDE
     Indication: CHEMOTHERAPY
     Dosage: UNK UNK, UNK
     Route: 065
  2. LORATADINE. [Concomitant]
     Active Substance: LORATADINE
     Dosage: UNK UNK, UNK
     Route: 065
  3. CYCLOBENZAPRINE. [Concomitant]
     Active Substance: CYCLOBENZAPRINE
     Dosage: UNK UNK, UNK
     Route: 065
  4. CIMETIDINE [Concomitant]
     Active Substance: CIMETIDINE
     Dosage: UNK UNK, UNK
     Route: 065
  5. NAPROXEN. [Concomitant]
     Active Substance: NAPROXEN
     Dosage: UNK UNK, UNK
     Route: 065
  6. PREDNISONE. [Concomitant]
     Active Substance: PREDNISONE
     Dosage: UNK UNK, UNK
     Route: 065
  7. CYTOXAN [Concomitant]
     Active Substance: CYCLOPHOSPHAMIDE
     Indication: CHEMOTHERAPY
     Dosage: UNK UNK, UNK
     Route: 065
  8. FLUCONAZOLE. [Concomitant]
     Active Substance: FLUCONAZOLE
     Dosage: UNK UNK, UNK
     Route: 065
  9. PROMETHAZINE [Concomitant]
     Active Substance: PROMETHAZINE\PROMETHAZINE HYDROCHLORIDE
     Dosage: UNK UNK, UNK
     Route: 065
  10. MICARDIS [Concomitant]
     Active Substance: TELMISARTAN
     Dosage: UNK UNK, UNK
     Route: 065
  11. TAXOTERE [Suspect]
     Active Substance: DOCETAXEL
     Indication: BREAST CANCER FEMALE
     Dosage: 156 MG, Q3W
     Route: 042
     Dates: start: 20140723, end: 20140723
  12. GLIPIZIDE. [Concomitant]
     Active Substance: GLIPIZIDE
     Dosage: UNK UNK, UNK
     Route: 065
  13. ZOFRAN [Concomitant]
     Active Substance: ONDANSETRON HYDROCHLORIDE
     Dosage: UNK UNK, UNK
     Route: 065
  14. ATENOLOL. [Concomitant]
     Active Substance: ATENOLOL
     Dosage: UNK UNK, UNK
     Route: 065
  15. VALSARTAN + HCTZ [Concomitant]
     Active Substance: HYDROCHLOROTHIAZIDE\VALSARTAN
     Route: 065
  16. HYOSCYAMINE. [Concomitant]
     Active Substance: HYOSCYAMINE
     Dosage: UNK UNK, UNK
     Route: 065
  17. LETROZOLE. [Concomitant]
     Active Substance: LETROZOLE
     Dosage: UNK UNK, UNK
     Route: 065
  18. LOVAZA [Concomitant]
     Active Substance: OMEGA-3-ACID ETHYL ESTERS
     Dosage: UNK UNK, UNK
     Route: 065
  19. TAXOTERE [Suspect]
     Active Substance: DOCETAXEL
     Dosage: 156 MG, Q3W
     Route: 042
     Dates: start: 20140924, end: 20140924
  20. JANUMET [Concomitant]
     Active Substance: METFORMIN HYDROCHLORIDE\SITAGLIPTIN PHOSPHATE
     Dosage: UNK UNK, UNK
     Route: 065
  21. TAMOXIFEN [Concomitant]
     Active Substance: TAMOXIFEN
     Dosage: UNK UNK, UNK
     Route: 065

REACTIONS (2)
  - Alopecia [Recovering/Resolving]
  - Psychological trauma [Unknown]

NARRATIVE: CASE EVENT DATE: 20150324
